FAERS Safety Report 8590178 (Version 6)
Quarter: 2012Q4

REPORT INFORMATION
  Report Type: 
  Country: DE (occurrence: DE)
  Receive Date: 20120601
  Receipt Date: 20121029
  Transmission Date: 20130627
  Serious: Yes (Hospitalization)
  Sender: FDA-Public Use
  Company Number: DE-JNJFOC-20120518930

PATIENT
  Age: 77 Year
  Sex: Female
  Weight: 75 kg

DRUGS (4)
  1. STELARA [Suspect]
     Indication: PSORIASIS
     Route: 058
     Dates: start: 20101210
  2. STELARA [Suspect]
     Indication: PSORIASIS
     Route: 058
     Dates: start: 201204
  3. ZOPICLON [Concomitant]
     Indication: SLEEP DISORDER
     Route: 065
  4. DIOVAN [Concomitant]
     Indication: HYPERTENSION
     Route: 065

REACTIONS (6)
  - Erythema annulare [Recovering/Resolving]
  - Stevens-Johnson syndrome [Recovering/Resolving]
  - Acquired epidermolysis bullosa [Recovering/Resolving]
  - Gastritis [Unknown]
  - Haemorrhoids [Unknown]
  - Pemphigoid [Recovering/Resolving]
